FAERS Safety Report 5015397-1 (Version None)
Quarter: 2006Q2

REPORT INFORMATION
  Report Type: 
  Country: None (occurrence: None)
  Receive Date: 20060601
  Receipt Date: 20060524
  Transmission Date: 20061013
  Serious: Yes (Hospitalization, Other)
  Sender: FDA-Public Use
  Company Number: PHBS2006BR07789

PATIENT
  Age: 41 Year
  Sex: Male
  Weight: 110 kg

DRUGS (2)
  1. DIOVAN [Suspect]
     Indication: HYPERTENSION
     Dosage: 80 MG, QD
     Route: 048
     Dates: start: 20060424, end: 20060522
  2. DIOVAN [Suspect]
     Dosage: 80 MG, BID
     Route: 048
     Dates: start: 20060522

REACTIONS (6)
  - BACK PAIN [None]
  - BLOOD PRESSURE FLUCTUATION [None]
  - CHROMATURIA [None]
  - NEPHROLITHIASIS [None]
  - RED BLOOD CELL COUNT DECREASED [None]
  - RENAL COLIC [None]
